FAERS Safety Report 6140833-7 (Version None)
Quarter: 2009Q2

REPORT INFORMATION
  Report Type: 
  Country: None (occurrence: None)
  Receive Date: 20090402
  Receipt Date: 20081209
  Transmission Date: 20091009
  Serious: No
  Sender: FDA-Public Use
  Company Number: US-KINGPHARMUSA00001-K200801391

PATIENT
  Sex: Female

DRUGS (1)
  1. SKELAXIN [Suspect]
     Route: 048

REACTIONS (8)
  - DYSKINESIA [None]
  - DYSURIA [None]
  - HEART RATE INCREASED [None]
  - INSOMNIA [None]
  - MOOD ALTERED [None]
  - OROPHARYNGEAL PAIN [None]
  - PYREXIA [None]
  - TREMOR [None]
